FAERS Safety Report 7965508-0 (Version None)
Quarter: 2011Q4

REPORT INFORMATION
  Report Type: 
  Country: None (occurrence: None)
  Receive Date: 20111208
  Receipt Date: 20111129
  Transmission Date: 20120403
  Serious: Yes (Hospitalization, Other)
  Sender: FDA-Public Use
  Company Number: US-BAYER-2011-045416

PATIENT
  Age: 45 Year
  Sex: Female
  Weight: 86.168 kg

DRUGS (3)
  1. YAZ [Suspect]
     Indication: PREMENSTRUAL SYNDROME
     Dosage: UNK
     Route: 048
     Dates: start: 20070201, end: 20071101
  2. CIPROFLOXACIN [Concomitant]
  3. COLACE [Concomitant]

REACTIONS (11)
  - PULMONARY EMBOLISM [None]
  - ANHEDONIA [None]
  - GALLBLADDER DISORDER [None]
  - RENAL VEIN THROMBOSIS [None]
  - DEPRESSION [None]
  - PAIN [None]
  - ANXIETY [None]
  - THROMBOSIS [None]
  - CEREBROVASCULAR ACCIDENT [None]
  - MYOCARDIAL INFARCTION [None]
  - DEEP VEIN THROMBOSIS [None]
